FAERS Safety Report 8061401-6 (Version None)
Quarter: 2012Q1

REPORT INFORMATION
  Report Type: 
  Country: None (occurrence: None)
  Receive Date: 20120120
  Receipt Date: 20111006
  Transmission Date: 20120608
  Serious: No
  Sender: FDA-Public Use
  Company Number: US-ALLERGAN-1113236US

PATIENT
  Age: 65 Year
  Sex: Female

DRUGS (3)
  1. SYSTANE [Concomitant]
  2. REFRESH PM [Concomitant]
     Indication: PRODUCT USED FOR UNKNOWN INDICATION
  3. RESTASIS [Suspect]
     Indication: DRY EYE
     Dosage: 1 GTT, BID
     Route: 047
     Dates: start: 20111005

REACTIONS (3)
  - EYE IRRITATION [None]
  - EYE PRURITUS [None]
  - VISION BLURRED [None]
